FAERS Safety Report 4896603-0 (Version None)
Quarter: 2006Q1

REPORT INFORMATION
  Report Type: 
  Country: None (occurrence: None)
  Receive Date: 20060131
  Receipt Date: 20060120
  Transmission Date: 20060701
  Serious: Yes (Other)
  Sender: FDA-Public Use
  Company Number: US-AMGEN-US165965

PATIENT
  Sex: Female

DRUGS (2)
  1. ARANESP [Suspect]
     Indication: ANAEMIA OF MALIGNANT DISEASE
     Route: 058
     Dates: start: 20050101, end: 20060101
  2. IRON [Concomitant]

REACTIONS (2)
  - HAEMOLYTIC ANAEMIA [None]
  - THERAPEUTIC RESPONSE DECREASED [None]
